FAERS Safety Report 25884132 (Version 2)
Quarter: 2025Q4

REPORT INFORMATION
  Report Type: Spontaneous
  Country: US (occurrence: US)
  Receive Date: 20251006
  Receipt Date: 20251009
  Transmission Date: 20260118
  Serious: Yes (Death, Other)
  Sender: PFIZER
  Company Number: US-PFIZER INC-PV202500117885

PATIENT
  Age: 74 Year
  Sex: Female

DRUGS (4)
  1. OXALIPLATIN [Suspect]
     Active Substance: OXALIPLATIN
     Indication: Gallbladder cancer
     Dosage: UNK, CYCLIC, POSTOPERATIVE
  2. LEUCOVORIN CALCIUM [Suspect]
     Active Substance: LEUCOVORIN CALCIUM
     Indication: Gallbladder cancer
     Dosage: UNK, CYCLIC, POSTOPERATIVE
  3. FLUOROURACIL [Suspect]
     Active Substance: FLUOROURACIL
     Indication: Gallbladder cancer
     Dosage: UNK UNK, CYCLIC, POSTOPERATIVE
  4. XELODA [Suspect]
     Active Substance: CAPECITABINE
     Indication: Gallbladder cancer
     Dosage: UNK, CYCLIC, POSTOPERATIVE

REACTIONS (2)
  - Drug ineffective [Fatal]
  - Diarrhoea [Unknown]
